FAERS Safety Report 8478058-2 (Version None)
Quarter: 2012Q2

REPORT INFORMATION
  Report Type: 
  Country: None (occurrence: None)
  Receive Date: 20120629
  Receipt Date: 20120618
  Transmission Date: 20120825
  Serious: Yes (Hospitalization, Other)
  Sender: FDA-Public Use
  Company Number: US-GENZYME-THYM-1002409

PATIENT
  Sex: Female
  Weight: 60.53 kg

DRUGS (225)
  1. THYMOGLOBULIN [Suspect]
     Dosage: 100 MG, ONCE
     Route: 042
     Dates: start: 20110409, end: 20110409
  2. THYMOGLOBULIN [Suspect]
     Dosage: 100 MG, ONCE
     Route: 042
     Dates: start: 20110420, end: 20110420
  3. LASIX [Concomitant]
     Dosage: 80 MG, ONCE
     Route: 042
     Dates: start: 20110410, end: 20110410
  4. CELLCEPT [Concomitant]
     Dosage: 500 MG, TID
     Route: 048
  5. CELLCEPT [Concomitant]
     Dosage: 500 MG, TID
     Route: 048
     Dates: start: 20110531, end: 20110601
  6. ZOLPIDEM [Concomitant]
     Dosage: 10 MG, AT BED TIME
     Route: 048
     Dates: start: 20110408, end: 20110427
  7. DOCUSATE SODIUM [Concomitant]
     Indication: PRODUCT USED FOR UNKNOWN INDICATION
     Dosage: 100 MG, BID
     Route: 048
     Dates: start: 20110408, end: 20110427
  8. DELTASONE [Concomitant]
     Dosage: 5 MG, QD
     Route: 048
  9. ACETAMINOPHEN [Concomitant]
     Dosage: 650 MG, ONCE
     Route: 048
     Dates: start: 20110409, end: 20110409
  10. ACETAMINOPHEN [Concomitant]
  11. PHENERGAN HCL [Concomitant]
     Indication: NAUSEA
     Dosage: 6.25 MG, UNK
     Route: 042
     Dates: start: 20110928, end: 20110928
  12. PHENERGAN HCL [Concomitant]
     Dosage: 25 MG, Q4HR, AS PER NEDDED
     Route: 048
     Dates: start: 20110531, end: 20110601
  13. NALOXONE [Concomitant]
     Indication: REVERSAL OF OPIATE ACTIVITY
     Dosage: 0.4 MG, PRN
     Route: 042
     Dates: start: 20110407, end: 20110427
  14. DIPHENHYDRAMINE HCL [Concomitant]
     Dosage: UNK
     Route: 042
     Dates: start: 20110419, end: 20110426
  15. SODIUM CHLORIDE [Concomitant]
     Dosage: UNK
     Route: 065
     Dates: start: 20110408, end: 20110408
  16. SODIUM CHLORIDE [Concomitant]
     Dosage: 30 ML/HOUR, CONTINOUS
     Route: 042
     Dates: start: 20110411, end: 20110414
  17. SODIUM CHLORIDE [Concomitant]
     Dosage: 50 ML/HOUR , CONTINOUS
     Route: 042
     Dates: start: 20110409, end: 20110411
  18. SODIUM CHLORIDE [Concomitant]
     Dosage: 80 ML/HOUR, PRE-OP CONTINOUS
     Route: 042
     Dates: start: 20110407, end: 20110407
  19. COUMADIN [Concomitant]
     Indication: HEPARIN-INDUCED THROMBOCYTOPENIA
     Route: 065
  20. PROGRAF [Concomitant]
     Dosage: 80 MG, BID
     Route: 048
  21. COREG [Concomitant]
     Dosage: 25 MG, UNK
     Route: 048
  22. VERSED [Concomitant]
     Indication: PRODUCT USED FOR UNKNOWN INDICATION
     Dosage: 2 MG, ONCE
     Route: 042
     Dates: start: 20110928, end: 20110928
  23. DIPHENHYDRAMINE HCL [Concomitant]
     Dosage: 25 MG, ONCE
     Route: 048
     Dates: start: 20110418, end: 20110423
  24. DIPHENHYDRAMINE HCL [Concomitant]
     Dosage: 50 MG, EVERY 6 HOURS
     Route: 048
     Dates: start: 20110423, end: 20110423
  25. METHYLPEDNISOLONE SODIUM SUCCINATE [Concomitant]
     Indication: PROPHYLAXIS AGAINST TRANSPLANT REJECTION
     Dosage: 150 MG, ONCE
     Route: 042
     Dates: start: 20110409, end: 20110409
  26. ONDANSETRON [Concomitant]
     Dosage: 4 MG, UNK
     Route: 042
     Dates: start: 20110407, end: 20110407
  27. PREDNISONE [Concomitant]
     Dosage: 30 MG, ONCE
     Route: 048
     Dates: start: 20110413, end: 20110413
  28. PREDNISONE [Concomitant]
     Dosage: 40 MG, ONCE
     Route: 048
     Dates: start: 20110412, end: 20110412
  29. PREDNISONE [Concomitant]
     Dosage: 80 MG, ONCE
     Route: 048
     Dates: start: 20110410, end: 20110410
  30. PREDNISONE [Concomitant]
     Dosage: 5 MG, QD
     Route: 048
     Dates: start: 20111027
  31. MICAFUNGIN SODIUM [Concomitant]
     Indication: PRODUCT USED FOR UNKNOWN INDICATION
     Dosage: 100 MG, QD
     Route: 042
     Dates: start: 20110419, end: 20110421
  32. OXYCODONE/ACETAMINOPHEN [Concomitant]
     Dosage: 325 MG, PRN, EVERY 4 HOUR
     Route: 048
  33. OXYCODONE/ACETAMINOPHEN [Concomitant]
     Dosage: UNK
     Route: 048
     Dates: start: 20110418, end: 20110427
  34. OXYCODONE/ACETAMINOPHEN [Concomitant]
     Dosage: 65 MG/ML, ONCE
     Route: 048
     Dates: start: 20110531, end: 20110531
  35. TACROLIMUS [Concomitant]
     Dosage: 3 MG, BID
     Route: 048
     Dates: start: 20110420, end: 20110425
  36. THERAPEUTIC HAND-BODY LOTION [Concomitant]
     Indication: DRY SKIN
     Dosage: UNK
     Route: 061
     Dates: start: 20110419, end: 20110419
  37. THYMOGLOBULIN [Suspect]
     Dosage: 100 MG, ONCE
     Route: 042
     Dates: start: 20110418, end: 20110418
  38. THYMOGLOBULIN [Suspect]
     Dosage: 100 MG, ONCE
     Route: 042
     Dates: start: 20110422, end: 20110422
  39. LASIX [Concomitant]
     Dosage: 60 MG, ONCE
     Route: 042
     Dates: start: 20110408, end: 20110408
  40. LASIX [Concomitant]
     Dosage: 80 MG, ONCE
     Route: 042
     Dates: start: 20110411, end: 20110411
  41. LASIX [Concomitant]
     Dosage: 40 MG, BID
     Route: 042
     Dates: start: 20110419, end: 20110427
  42. CELLCEPT [Concomitant]
     Dosage: 750 MG, BID
     Route: 048
     Dates: start: 20110418, end: 20110427
  43. DELTASONE [Concomitant]
     Dosage: 10 MG, QD
     Route: 048
     Dates: start: 20110929, end: 20110929
  44. PERCOCET [Concomitant]
     Indication: PAIN
     Dosage: UNK
     Route: 048
  45. ACETAMINOPHEN [Concomitant]
     Dosage: 650 MG, ONCE
     Route: 048
     Dates: start: 20110408, end: 20110408
  46. DIPHENHYDRAMINE HCL [Concomitant]
     Indication: PRODUCT USED FOR UNKNOWN INDICATION
     Dosage: 25 MG, ONCE
     Route: 042
     Dates: start: 20110421, end: 20110421
  47. DIPHENHYDRAMINE HCL [Concomitant]
     Dosage: UNK
     Route: 065
     Dates: start: 20111027, end: 20111028
  48. SODIUM CHLORIDE [Concomitant]
     Indication: PRODUCT USED FOR UNKNOWN INDICATION
     Dosage: 1000 ML, ONCE
     Route: 042
     Dates: start: 20110408, end: 20110408
  49. SODIUM CHLORIDE [Concomitant]
     Dosage: 1000 ML, UNK
     Route: 065
     Dates: start: 20110407, end: 20110407
  50. SODIUM CHLORIDE [Concomitant]
     Dosage: 125 ML/HOUR, CONTINOUS
     Route: 042
     Dates: start: 20110407, end: 20110409
  51. SODIUM CHLORIDE [Concomitant]
     Dosage: 125 ML/HOUR, CONTINOUS
     Route: 042
     Dates: start: 20110407, end: 20110407
  52. MAXALT [Concomitant]
     Indication: MIGRAINE
     Dosage: 10 MG, ONCE
     Route: 048
     Dates: start: 20110928, end: 20110928
  53. ARGATROBAN [Concomitant]
     Indication: PRODUCT USED FOR UNKNOWN INDICATION
     Dosage: UNK
     Route: 065
     Dates: start: 20110928, end: 20110928
  54. CARBOCAINE [Concomitant]
     Indication: PRODUCT USED FOR UNKNOWN INDICATION
     Dosage: UNK
     Route: 065
     Dates: start: 20110928, end: 20110928
  55. HYDROMORPHONE HCL [Concomitant]
     Indication: PRODUCT USED FOR UNKNOWN INDICATION
     Dosage: 1 MG, ONCE
     Route: 042
     Dates: start: 20110408, end: 20110408
  56. ONDANSETRON [Concomitant]
     Indication: NAUSEA
     Dosage: 4 MG, ONCE
     Route: 042
     Dates: start: 20110408, end: 20110408
  57. SODIUM CITRATE [Concomitant]
     Indication: PRODUCT USED FOR UNKNOWN INDICATION
     Dosage: 3 ML,  ONCE IN HEMODIALYSIS
     Route: 065
     Dates: start: 20110427, end: 20110427
  58. CARVEDILOL [Concomitant]
     Indication: PRODUCT USED FOR UNKNOWN INDICATION
     Dosage: 6.25 MG, BID
     Route: 048
     Dates: start: 20110414, end: 20110427
  59. DOPAMINE HCL [Concomitant]
     Indication: PRODUCT USED FOR UNKNOWN INDICATION
     Dosage: UNK
     Route: 042
     Dates: start: 20110408, end: 20110410
  60. FLUCONAZOLE [Concomitant]
     Indication: PRODUCT USED FOR UNKNOWN INDICATION
     Dosage: 200 MG, QD
     Route: 042
     Dates: start: 20110422, end: 20110422
  61. OXYCODONE/ACETAMINOPHEN [Concomitant]
     Dosage: 65 MG/ML, Q4HR, AS PER NEEDED
     Route: 048
     Dates: start: 20110531, end: 20110601
  62. VORICONAZOLE [Concomitant]
     Indication: PRODUCT USED FOR UNKNOWN INDICATION
     Dosage: 200 MG, TID
     Route: 048
     Dates: start: 20110422, end: 20110424
  63. THYMOGLOBULIN [Suspect]
     Dosage: 100 MG, ONCE
     Route: 042
     Dates: start: 20110413, end: 20110413
  64. CELLCEPT [Concomitant]
     Indication: PROPHYLAXIS AGAINST TRANSPLANT REJECTION
     Dosage: 1 G, BID
     Route: 048
  65. PROCRIT [Concomitant]
     Dosage: 16000 U, 1X/W
     Route: 058
     Dates: start: 20110928, end: 20110929
  66. GABAPENTIN [Concomitant]
     Indication: PRODUCT USED FOR UNKNOWN INDICATION
     Dosage: 200 MG, 3X/W
     Route: 048
     Dates: start: 20110408, end: 20110427
  67. DELTASONE [Concomitant]
     Dosage: 20 MG, ONCE
     Route: 048
  68. XANAX [Concomitant]
     Dosage: 0.25 MG, TID. PRN
     Route: 048
     Dates: start: 20090418
  69. ACETAMINOPHEN [Concomitant]
     Indication: PRODUCT USED FOR UNKNOWN INDICATION
     Dosage: 650 MG, Q4HR
     Route: 048
  70. ACETAMINOPHEN [Concomitant]
     Dosage: 650 MG, ONCE
     Route: 048
     Dates: start: 20110408, end: 20110408
  71. SODIUM CHLORIDE [Concomitant]
     Dosage: 1000 ML, ONCE
     Route: 042
     Dates: start: 20110408, end: 20110408
  72. SODIUM CHLORIDE [Concomitant]
     Dosage: 1000 ML, UNK, PER PROCEDURE
     Route: 042
     Dates: start: 20110531, end: 20110531
  73. PROGRAF [Concomitant]
     Indication: PRODUCT USED FOR UNKNOWN INDICATION
     Dosage: 5 MG, QD
     Route: 048
     Dates: start: 20110929, end: 20110929
  74. LIDOCAINE [Concomitant]
     Indication: PRODUCT USED FOR UNKNOWN INDICATION
     Dosage: 100 MG, PRN
     Route: 065
     Dates: start: 20110928, end: 20110928
  75. PROTONIX [Concomitant]
     Indication: PRODUCT USED FOR UNKNOWN INDICATION
     Dosage: 40 MG, QD
     Route: 048
     Dates: start: 20110929, end: 20110929
  76. ALTEPLASE [Concomitant]
     Indication: PRODUCT USED FOR UNKNOWN INDICATION
     Dosage: 4 MG, ONCE
     Route: 042
     Dates: start: 20110408, end: 20110408
  77. HYDROMORPHONE HCL [Concomitant]
     Dosage: UNK, CONTINOUS
     Route: 042
     Dates: start: 20110407, end: 20110407
  78. METHYLPEDNISOLONE SODIUM SUCCINATE [Concomitant]
     Dosage: 150 MG, ONCE
     Route: 042
     Dates: start: 20110409, end: 20110409
  79. ONDANSETRON [Concomitant]
     Indication: VOMITING
     Dosage: 4 MG, Q4HR
     Route: 042
     Dates: start: 20110419, end: 20110427
  80. ALPRAZOLAM [Concomitant]
     Indication: PRODUCT USED FOR UNKNOWN INDICATION
     Dosage: 0.25 MG, TID
     Dates: start: 20110408, end: 20110408
  81. FENTANYL CITRATE [Concomitant]
     Dosage: 25-100 MCG, UNK
     Route: 042
     Dates: start: 20110531, end: 20110531
  82. LOPERAMIDE [Concomitant]
     Indication: DIARRHOEA
     Dosage: 2 MG,
     Route: 048
     Dates: start: 20110416, end: 20110427
  83. MEPERIDINE HCL [Concomitant]
     Indication: PRODUCT USED FOR UNKNOWN INDICATION
     Dosage: 12.5 MG, UNK
     Route: 042
     Dates: start: 20110407, end: 20110407
  84. WITCH HAZEL-GLYCERIN PADS [Concomitant]
     Indication: HAEMORRHOIDS
     Dosage: UNK
     Route: 061
     Dates: start: 20110424, end: 20110427
  85. NEURONTIN [Concomitant]
     Indication: PRODUCT USED FOR UNKNOWN INDICATION
     Dosage: 200 MG, QD
     Route: 048
     Dates: start: 20110601, end: 20110601
  86. DEXILANT [Concomitant]
  87. CELLCEPT [Concomitant]
     Dosage: 1 G, BID
     Route: 042
     Dates: start: 20110408, end: 20110413
  88. XANAX [Concomitant]
     Dosage: 0.25 MG, TID, AS PER NEED
     Route: 048
     Dates: start: 20110531, end: 20110601
  89. CHAPSTICK [Concomitant]
     Indication: DRY SKIN
     Dosage: UNK
     Route: 061
     Dates: start: 20110408, end: 20110427
  90. ACETAMINOPHEN [Concomitant]
     Dosage: 650 MG, ONCE
     Route: 048
     Dates: start: 20110407, end: 20110407
  91. NALOXONE [Concomitant]
     Indication: PRODUCT USED FOR UNKNOWN INDICATION
     Dosage: 0.4 MG, PRN
     Route: 042
  92. SODIUM CHLORIDE [Concomitant]
     Dosage: 70 ML/HOUR, CONTINOUS
     Route: 042
     Dates: start: 20110414, end: 20110414
  93. SODIUM CHLORIDE [Concomitant]
     Dosage: UNK
     Route: 065
     Dates: start: 20110409, end: 20110409
  94. SODIUM CHLORIDE [Concomitant]
     Dosage: 42 ML/ HOUR
     Route: 042
     Dates: start: 20110407, end: 20110407
  95. PROGRAF [Concomitant]
     Dosage: 5 MG, QD
     Route: 048
  96. VANCOCIN HYDROCHLORIDE [Concomitant]
     Indication: PRODUCT USED FOR UNKNOWN INDICATION
     Dosage: 500 MG, ONCE
     Route: 042
     Dates: start: 20110928, end: 20110928
  97. COREG [Concomitant]
     Indication: PRODUCT USED FOR UNKNOWN INDICATION
     Dosage: 25 MG, BID
     Route: 048
     Dates: start: 20110929, end: 20110929
  98. DIPHENHYDRAMINE HCL [Concomitant]
     Dosage: 25 MG, ONCE
     Route: 048
     Dates: start: 20110422, end: 20110422
  99. METHYLPEDNISOLONE SODIUM SUCCINATE [Concomitant]
     Dosage: 250 MG, ONCE
     Route: 042
     Dates: start: 20110408, end: 20110408
  100. PREDNISONE [Concomitant]
     Indication: PROPHYLAXIS AGAINST TRANSPLANT REJECTION
     Dosage: 20 MG, ONCE
     Route: 048
     Dates: start: 20110414, end: 20110414
  101. PREDNISONE [Concomitant]
     Dosage: 60 MG, ONCE
     Route: 048
     Dates: start: 20110411, end: 20110411
  102. PREDNISONE [Concomitant]
     Dosage: 7.5 MG, QD
     Route: 048
  103. SODIUM CITRATE [Concomitant]
     Dosage: UNK
  104. ACETAMINOPHEN [Concomitant]
     Indication: PYREXIA
     Dosage: 650 MG, Q4HR
     Route: 048
     Dates: start: 20110408, end: 20110427
  105. CINACALCET HYDROCHLORIDE [Concomitant]
     Indication: PRODUCT USED FOR UNKNOWN INDICATION
     Dosage: 30 MG, QD
     Route: 048
     Dates: start: 20110408, end: 20110408
  106. MICAFUNGIN SODIUM [Concomitant]
     Dosage: 100 MG, QD
     Route: 042
     Dates: start: 20110418, end: 20110419
  107. ALBUTEROL [Concomitant]
     Indication: WHEEZING
     Dosage: UNK
     Route: 065
  108. INSULIN GLARGINE [Concomitant]
     Indication: PRODUCT USED FOR UNKNOWN INDICATION
     Dosage: 24 U, QD
     Route: 058
     Dates: start: 20111027
  109. PROCRIT [Concomitant]
     Indication: PRODUCT USED FOR UNKNOWN INDICATION
     Dosage: 16000 U, UNK
     Route: 058
  110. PROCRIT [Concomitant]
     Dosage: 20000 U, 1X/W
     Route: 058
  111. PEPCID [Concomitant]
     Indication: PRODUCT USED FOR UNKNOWN INDICATION
     Dosage: 40 MG, QD
     Route: 048
  112. PEPCID [Concomitant]
     Dosage: 20 MG, ONCE
     Route: 042
     Dates: start: 20110928, end: 20110928
  113. NYSTATIN [Concomitant]
     Dosage: UNK
     Route: 048
  114. DILAUDID [Concomitant]
     Indication: ANALGESIC THERAPY
     Route: 042
  115. PERCOCET [Concomitant]
     Dosage: UNK
     Route: 048
     Dates: start: 20110928, end: 20110929
  116. ACETAMINOPHEN [Concomitant]
     Dosage: 650 MG, ONCE
     Route: 048
     Dates: start: 20110418, end: 20110418
  117. ACETAMINOPHEN [Concomitant]
     Dosage: 650 MG, ONCE
     Route: 048
     Dates: start: 20110419, end: 20110427
  118. PROCHLORPERAZINE [Concomitant]
     Indication: NAUSEA
     Dosage: 10 MG, UNK, EVERY 6 HOURS
     Route: 042
     Dates: start: 20110408, end: 20110427
  119. PHENERGAN HCL [Concomitant]
     Dosage: 25 MG, Q4HR
     Route: 048
     Dates: start: 20110928, end: 20110929
  120. PHENERGAN HCL [Concomitant]
     Dosage: 25 MG, Q4HR (AS NEEDED)
     Route: 048
     Dates: start: 20110426
  121. SODIUM CHLORIDE [Concomitant]
     Dosage: 30 ML/HOUR, PRE-OP CONTINOUS
     Route: 042
     Dates: start: 20110407, end: 20110407
  122. BACTRIM [Concomitant]
     Dosage: 1 TABLET (400-80 MG) UNK
     Route: 048
     Dates: start: 20110601, end: 20110601
  123. PROGRAF [Concomitant]
     Dosage: 6 MG, QD
     Route: 048
  124. LIDOCAINE [Concomitant]
     Dosage: UNK
     Route: 065
     Dates: start: 20110408, end: 20110408
  125. MAXALT [Concomitant]
     Dosage: 10 MG, QD, PRN
     Route: 048
  126. MERREM [Concomitant]
     Indication: PRODUCT USED FOR UNKNOWN INDICATION
     Dosage: 1 G, BID
     Route: 042
     Dates: start: 20110928, end: 20110928
  127. MERREM [Concomitant]
     Dosage: 500 MG, ONCE
     Route: 042
     Dates: start: 20110929, end: 20110929
  128. VERSED [Concomitant]
     Dosage: 2 MG, UNK
     Route: 042
     Dates: start: 20110531, end: 20110531
  129. DIPHENHYDRAMINE HCL [Concomitant]
     Dosage: 25 MG, ONCE
     Route: 048
     Dates: start: 20110419, end: 20110419
  130. MAGNESIUM SULFATE [Concomitant]
     Indication: PRODUCT USED FOR UNKNOWN INDICATION
     Dosage: 1 G, EVERY HOUR
     Route: 042
     Dates: start: 20110424, end: 20110424
  131. METHYLPEDNISOLONE SODIUM SUCCINATE [Concomitant]
     Dosage: 60 MG, ONCE
     Route: 042
     Dates: start: 20110423, end: 20110423
  132. PREDNISONE [Concomitant]
     Dosage: 5 MG, QD
     Route: 048
     Dates: start: 20110415, end: 20110427
  133. B COMPLEX-VITAMIN C-FOLIC ACID [Concomitant]
     Indication: PRODUCT USED FOR UNKNOWN INDICATION
     Dosage: 1 CAPSULE, QD
     Route: 048
     Dates: start: 20110408, end: 20110427
  134. CALAMINE LOTION [Concomitant]
     Indication: PRURITUS
     Dosage: UNK, EVERY 6 HOURS
     Route: 061
     Dates: start: 20110423, end: 20110427
  135. FLUCONAZOLE [Concomitant]
     Dosage: 200 MG, QD
     Route: 042
     Dates: start: 20110416, end: 20110418
  136. OXYCODONE/ACETAMINOPHEN [Concomitant]
     Indication: PAIN
     Dosage: UNK
     Route: 048
     Dates: start: 20110413, end: 20110418
  137. SODIUM BICARBONATE [Concomitant]
     Indication: PRODUCT USED FOR UNKNOWN INDICATION
     Dosage: 1300 MG, TID
     Route: 048
     Dates: start: 20110413, end: 20110427
  138. TACROLIMUS [Concomitant]
     Dosage: 3.5 MG, BID
     Route: 048
     Dates: start: 20110426, end: 20110426
  139. DEXILANT [Concomitant]
     Indication: PRODUCT USED FOR UNKNOWN INDICATION
     Dosage: 60 MG, QD (AS NEEDED)
     Route: 048
     Dates: start: 20110531, end: 20110601
  140. THYMOGLOBULIN [Suspect]
  141. LASIX [Concomitant]
     Dosage: 80 MG, ONCE
     Route: 042
     Dates: start: 20110411, end: 20110411
  142. CELLCEPT [Concomitant]
     Dosage: 1 G, BID
     Route: 048
     Dates: start: 20110408, end: 20110408
  143. DILAUDID [Concomitant]
     Dosage: 0.2 MG, PRN
     Route: 042
  144. XANAX [Concomitant]
     Indication: ANXIETY
     Dosage: 0.25 MG, TID
     Route: 048
     Dates: start: 20090418
  145. XANAX [Concomitant]
     Dosage: 0.25 MG, TID
     Route: 048
     Dates: start: 20110928, end: 20110929
  146. DIPHENHYDRAMINE HCL [Concomitant]
     Dosage: UNK, EVERY 6 HOURS PRN
     Route: 042
     Dates: start: 20110407, end: 20110419
  147. DIPHENHYDRAMINE HCL [Concomitant]
     Dosage: 25 MG, ONCE
     Route: 048
     Dates: start: 20110531, end: 20110531
  148. SODIUM CHLORIDE [Concomitant]
     Dosage: 500 ML, ONCE
     Route: 042
     Dates: start: 20110408, end: 20110408
  149. SODIUM CHLORIDE [Concomitant]
     Dosage: 1000 ML, ONCE
     Route: 042
     Dates: start: 20110408, end: 20110408
  150. SODIUM CHLORIDE [Concomitant]
     Dosage: 50 ML/HOUR, CONTINOUS
     Route: 042
     Dates: start: 20110414, end: 20110416
  151. SODIUM CHLORIDE [Concomitant]
     Dosage: UNK, CONTINOUS
     Route: 042
     Dates: start: 20110407, end: 20110409
  152. BACTRIM [Concomitant]
     Dosage: 3X/W
     Route: 048
  153. FLOMAX [Concomitant]
     Indication: PRODUCT USED FOR UNKNOWN INDICATION
     Dosage: 0.4 MG, QD
     Route: 048
     Dates: start: 20110928, end: 20110929
  154. ATROPINE [Concomitant]
     Indication: BRADYCARDIA
     Dosage: 0.4 MG, PRN
     Route: 042
     Dates: start: 20110928, end: 20110928
  155. LIDOCAINE [Concomitant]
     Dosage: UNK
     Route: 065
     Dates: start: 20110414, end: 20110414
  156. MERREM [Concomitant]
     Dosage: 500 MG, Q12HR
     Route: 042
     Dates: start: 20110929, end: 20110929
  157. CALCIUM GLUCONATE [Concomitant]
     Indication: PRODUCT USED FOR UNKNOWN INDICATION
     Dosage: 2 G, ONCE
     Route: 042
     Dates: start: 20110424, end: 20110424
  158. DIPHENHYDRAMINE HCL [Concomitant]
     Dosage: 25 MG, ONCE
     Route: 048
     Dates: start: 20110407, end: 20110407
  159. HYDROMORPHONE HCL [Concomitant]
     Dosage: UNK, CONTINOUS
     Route: 042
     Dates: start: 20110408, end: 20110413
  160. METHYLPEDNISOLONE SODIUM SUCCINATE [Concomitant]
     Dosage: 500 MG, ONCE
     Route: 042
     Dates: start: 20110407, end: 20110407
  161. ONDANSETRON [Concomitant]
     Dosage: 4 MG, EVERY 8 HOURS
     Route: 042
     Dates: start: 20110407, end: 20110408
  162. SODIUM CITRATE [Concomitant]
     Dosage: 3 ML, ONCE IN HEMODIALYSIS
     Route: 065
     Dates: start: 20110409, end: 20110409
  163. ACETAMINOPHEN [Concomitant]
     Indication: PAIN
     Dosage: 650 MG, Q4HR
     Route: 048
     Dates: start: 20110408, end: 20110408
  164. ACETAMINOPHEN [Concomitant]
     Dosage: 650 MG, ONCE
     Route: 048
     Dates: start: 20110531, end: 20110531
  165. MIDAZOLAM [Concomitant]
     Indication: PRODUCT USED FOR UNKNOWN INDICATION
     Dosage: 0.25-2 MG, INTRA-OP MULTIPLE
     Route: 042
     Dates: start: 20110414, end: 20110414
  166. MORPHINE [Concomitant]
     Indication: PRODUCT USED FOR UNKNOWN INDICATION
     Dosage: 2 MG, PACU
     Route: 042
     Dates: start: 20110407, end: 20110407
  167. SERTRALINE HYDROCHLORIDE [Concomitant]
     Indication: PRODUCT USED FOR UNKNOWN INDICATION
     Dosage: 50 MG, UNK, EVERY EVENING
     Route: 048
     Dates: start: 20110425, end: 20110427
  168. TACROLIMUS [Concomitant]
     Dosage: 2 MG, BID
     Route: 048
     Dates: start: 20110419, end: 20110420
  169. TAMSULOSIN HCL [Concomitant]
     Indication: PRODUCT USED FOR UNKNOWN INDICATION
     Dosage: 0.4 MG, UNK, AT BED TIME
     Route: 048
     Dates: start: 20110424, end: 20110427
  170. LIDOCAINE-SODIUM BICARBONATE [Concomitant]
     Indication: PRODUCT USED FOR UNKNOWN INDICATION
     Dosage: 1-20 ML, UNK
     Route: 065
     Dates: start: 20110531, end: 20110531
  171. THYMOGLOBULIN [Suspect]
     Indication: PROPHYLAXIS AGAINST TRANSPLANT REJECTION
     Dosage: 100 MG, ONCE
     Route: 042
     Dates: start: 20110407, end: 20110407
  172. LASIX [Concomitant]
     Indication: PRODUCT USED FOR UNKNOWN INDICATION
     Dosage: 100 MG, ONCE
     Route: 042
     Dates: start: 20110409, end: 20110409
  173. LASIX [Concomitant]
     Dosage: 80 MG, ONCE
  174. CORTICOSTEROIDS [Concomitant]
     Indication: PROPHYLAXIS AGAINST TRANSPLANT REJECTION
     Route: 065
  175. CELLCEPT [Concomitant]
     Dosage: 1 G, ONCE
     Route: 048
     Dates: start: 20110407, end: 20110407
  176. CELLCEPT [Concomitant]
     Dosage: 750 MG, BID
     Route: 042
     Dates: start: 20110413, end: 20110418
  177. CELLCEPT [Concomitant]
     Dosage: 500 MG, ONCE
     Route: 048
     Dates: start: 20110531, end: 20110531
  178. CELLCEPT [Concomitant]
     Dosage: 250 MG, TID
     Route: 048
  179. MUPIROCIN CALCIUM [Concomitant]
     Indication: PRODUCT USED FOR UNKNOWN INDICATION
     Dosage: 1 G, Q12HR
     Route: 045
     Dates: start: 20110411, end: 20110417
  180. ZOLPIDEM [Concomitant]
     Indication: PRODUCT USED FOR UNKNOWN INDICATION
     Dosage: 40 MG, QD
     Route: 048
  181. FOLVITE [Concomitant]
     Indication: PRODUCT USED FOR UNKNOWN INDICATION
     Dosage: 1 MG, QD
     Route: 048
     Dates: start: 20090117
  182. B COMPLEX WITH VITAMIN C [Concomitant]
     Indication: PRODUCT USED FOR UNKNOWN INDICATION
     Dosage: 1 DF, QD
     Route: 048
  183. NYSTATIN [Concomitant]
     Dosage: 5 ML, QID
     Route: 048
     Dates: start: 20111027
  184. ACETAMINOPHEN [Concomitant]
     Dosage: 650 MG, ONCE
     Route: 048
     Dates: start: 20110422, end: 20110422
  185. PROCHLORPERAZINE [Concomitant]
     Indication: PRODUCT USED FOR UNKNOWN INDICATION
     Dosage: 10 MG, ONCE
     Route: 042
     Dates: start: 20110408, end: 20110408
  186. PHENERGAN HCL [Concomitant]
     Indication: ANTIEMETIC SUPPORTIVE CARE
     Dosage: 12.5 MG, Q4HR
     Route: 042
  187. DIPHENHYDRAMINE HCL [Concomitant]
     Dosage: 50 MG, EVERY 6 HOURS PRN
     Route: 042
     Dates: start: 20110423, end: 20110427
  188. SODIUM CHLORIDE [Concomitant]
     Indication: INTRAOPERATIVE CARE
     Dosage: 1000 ML, UNK
     Route: 050
     Dates: start: 20110928, end: 20110928
  189. SODIUM CHLORIDE [Concomitant]
     Dosage: 42 ML, Q1HR
     Route: 042
     Dates: start: 20110928, end: 20110928
  190. BACTRIM [Concomitant]
     Indication: PRODUCT USED FOR UNKNOWN INDICATION
     Dosage: 1 DF, QD
     Route: 048
     Dates: start: 20110929, end: 20110929
  191. PROGRAF [Concomitant]
     Dosage: 8 MG, BID
     Route: 048
     Dates: start: 20110531, end: 20110601
  192. COREG [Concomitant]
     Dosage: 12.5 MG, BID
     Route: 048
     Dates: start: 20110531, end: 20110601
  193. VITAMIN D [Concomitant]
     Indication: PRODUCT USED FOR UNKNOWN INDICATION
     Dosage: 3000 U, QD
     Route: 048
     Dates: start: 20110929, end: 20110929
  194. DIPHENHYDRAMINE HCL [Concomitant]
     Dosage: 25 MG, ONCE
     Route: 048
     Dates: start: 20110408, end: 20110408
  195. FAMOTIDINE [Concomitant]
     Indication: PRODUCT USED FOR UNKNOWN INDICATION
     Dosage: 40 MG, QD
     Route: 048
     Dates: start: 20110410, end: 20110427
  196. TACROLIMUS [Concomitant]
     Indication: PROPHYLAXIS AGAINST TRANSPLANT REJECTION
     Dosage: 1 MG, BID
     Route: 048
     Dates: start: 20110418, end: 20110419
  197. TECHNETIUM (99M TC) MERTIATIDE [Concomitant]
     Indication: DIAGNOSTIC PROCEDURE
     Dosage: 15 MCI, ONCE IN HEMOLYSIS
     Route: 042
     Dates: start: 20110415, end: 20110415
  198. IMODIUM [Concomitant]
     Indication: DIARRHOEA
     Dosage: 2 MG, Q4HR, AS PER NEEDED
     Route: 048
     Dates: start: 20110531, end: 20110601
  199. LASIX [Concomitant]
     Dosage: 40 MG, ONCE
     Route: 042
     Dates: start: 20110408, end: 20110408
  200. LASIX [Concomitant]
     Dosage: 80 MG, ONCE
     Route: 042
     Dates: start: 20110409, end: 20110409
  201. CELLCEPT [Concomitant]
     Dosage: 500 MG, TID
     Route: 048
     Dates: start: 20110928, end: 20110929
  202. PAROXETINE HCL [Concomitant]
     Indication: PRODUCT USED FOR UNKNOWN INDICATION
     Dosage: 30 MG, QD
     Route: 048
     Dates: start: 20110408, end: 20110425
  203. FOLVITE [Concomitant]
     Dosage: 1 MG, QD
     Route: 048
     Dates: start: 20110929, end: 20110929
  204. NYSTATIN [Concomitant]
     Indication: PRODUCT USED FOR UNKNOWN INDICATION
     Dosage: 5 ML, TID
     Route: 048
     Dates: start: 20110408, end: 20110427
  205. DELTASONE [Concomitant]
     Indication: PRODUCT USED FOR UNKNOWN INDICATION
     Dosage: 30 MG, ONCE
     Route: 048
  206. ACETAMINOPHEN [Concomitant]
     Dosage: 650 MG, ONCE
     Route: 048
     Dates: start: 20110420, end: 20110420
  207. DIPHENHYDRAMINE HCL [Concomitant]
     Indication: PRURITUS
     Dosage: 50 MG, ONCE
     Route: 042
     Dates: start: 20110423, end: 20110423
  208. PROGRAF [Concomitant]
     Dosage: 6 MG, QD
     Route: 048
     Dates: start: 20110929, end: 20110929
  209. FLOMAX [Concomitant]
     Dosage: 0.4 MG, QD
     Route: 048
     Dates: start: 20110426
  210. FLOMAX [Concomitant]
     Dosage: 0.4 MG, QD
     Route: 048
     Dates: start: 20110531, end: 20110601
  211. MAXALT [Concomitant]
  212. VITAMIN D [Concomitant]
     Dosage: 1000 U, TID
     Route: 048
     Dates: start: 20110701
  213. ZOFRAN [Concomitant]
     Indication: PRODUCT USED FOR UNKNOWN INDICATION
     Dosage: 4 MG, UNK
     Route: 042
     Dates: start: 20110928, end: 20110928
  214. DIPHENHYDRAMINE HCL [Concomitant]
     Dosage: 25 MG, ONCE
     Route: 048
     Dates: start: 20110420, end: 20110420
  215. DIPHENHYDRAMINE HCL [Concomitant]
     Dosage: 25 MG, ONCE
     Route: 048
     Dates: start: 20110409, end: 20110409
  216. HYDROMORPHONE HCL [Concomitant]
     Dosage: UNK, CONTINOUS
     Route: 042
     Dates: start: 20110408, end: 20110408
  217. METHYLPEDNISOLONE SODIUM SUCCINATE [Concomitant]
     Dosage: 60 MG, ONCE
     Route: 042
     Dates: start: 20110424, end: 20110424
  218. ONDANSETRON [Concomitant]
     Indication: PRODUCT USED FOR UNKNOWN INDICATION
     Dosage: 4 MG, ONCE
     Route: 042
     Dates: start: 20110418, end: 20110418
  219. PREDNISONE [Concomitant]
     Dosage: 10 MG, QD
     Route: 048
     Dates: start: 20110601, end: 20110601
  220. ESOMEPRAZOLE [Concomitant]
     Indication: PRODUCT USED FOR UNKNOWN INDICATION
     Dosage: 20 MG, QD
     Route: 042
     Dates: start: 20110408, end: 20110410
  221. FENTANYL CITRATE [Concomitant]
     Indication: PAIN
     Dosage: UNK, INTRA-OP MULTIPLE
     Route: 042
     Dates: start: 20110414, end: 20110414
  222. PROMETHAZINE [Concomitant]
     Indication: NAUSEA
     Dosage: 12.5 MG, Q4HR
     Route: 042
     Dates: start: 20110407, end: 20110427
  223. TACROLIMUS [Concomitant]
     Dosage: 5 MG, BID
     Route: 048
     Dates: start: 20110426, end: 20110427
  224. ALBUTEROL [Concomitant]
     Indication: DYSPNOEA
     Dosage: 2 PUFFS, Q4HR
     Route: 065
     Dates: start: 20110531, end: 20110601
  225. LANSOPRAZOLE [Concomitant]
     Indication: PRODUCT USED FOR UNKNOWN INDICATION
     Dosage: 30 MG, BID
     Route: 048
     Dates: start: 20110531, end: 20110601

REACTIONS (20)
  - NAUSEA [None]
  - TRANSPLANT REJECTION [None]
  - HYPEROSMOLAR STATE [None]
  - LYMPHOCYTE COUNT DECREASED [None]
  - HYPERGLYCAEMIA [None]
  - PARVOVIRUS INFECTION [None]
  - CYTOMEGALOVIRUS VIRAEMIA [None]
  - GASTROENTERITIS [None]
  - ANAEMIA [None]
  - PYELONEPHRITIS ACUTE [None]
  - COMPLICATIONS OF TRANSPLANTED KIDNEY [None]
  - ABDOMINAL PAIN [None]
  - HEADACHE [None]
  - RENAL TUBULAR NECROSIS [None]
  - VISION BLURRED [None]
  - VOMITING [None]
  - HYPERKALAEMIA [None]
  - KIDNEY TRANSPLANT REJECTION [None]
  - DEHYDRATION [None]
  - THROMBOCYTOPENIA [None]
